FAERS Safety Report 5524815-1 (Version None)
Quarter: 2007Q4

REPORT INFORMATION
  Report Type: 
  Country: None (occurrence: None)
  Receive Date: 20071116
  Receipt Date: 20071108
  Transmission Date: 20080405
  Serious: Yes (Other)
  Sender: FDA-Public Use
  Company Number: 2007334890

PATIENT
  Sex: Female

DRUGS (1)
  1. NICORETTE [Suspect]
     Indication: SMOKING CESSATION THERAPY
     Dosage: 15MG, TRANSDERMAL
     Route: 062

REACTIONS (3)
  - APPLICATION SITE PRURITUS [None]
  - DYSPNOEA [None]
  - PHARYNGEAL HYPOAESTHESIA [None]
